FAERS Safety Report 5646092-3 (Version None)
Quarter: 2008Q1

REPORT INFORMATION
  Report Type: 
  Country: None (occurrence: None)
  Receive Date: 20080229
  Receipt Date: 20080218
  Transmission Date: 20080703
  Serious: Yes (Congenital Anomaly)
  Sender: FDA-Public Use
  Company Number: DK-PFIZER INC-2008016706

PATIENT
  Sex: Female

DRUGS (4)
  1. RELPAX [Suspect]
  2. ZOMIG [Suspect]
  3. SUMATRIPTAN SUCCINATE [Suspect]
  4. NITROFURANTOIN [Concomitant]
     Route: 048
     Dates: start: 20041002, end: 20041011

REACTIONS (2)
  - DRUG EXPOSURE DURING PREGNANCY [None]
  - PETIT MAL EPILEPSY [None]
